FAERS Safety Report 15235373 (Version 1)
Quarter: 2018Q3

REPORT INFORMATION
  Report Type: Spontaneous
  Country: US (occurrence: US)
  Receive Date: 20180709
  Receipt Date: 20180709
  Transmission Date: 20181010
  Serious: No
  Sender: FDA-Public Use
  Company Number: None

PATIENT
  Age: 53 Year
  Sex: Female
  Weight: 68.04 kg

DRUGS (1)
  1. PAROXETINE 25MG 24HR TAB [Suspect]
     Active Substance: PAROXETINE
     Indication: ANXIETY
     Route: 048

REACTIONS (2)
  - Suicidal ideation [None]
  - Feeling abnormal [None]
